FAERS Safety Report 9258551 (Version 1)
Quarter: 2013Q1

REPORT INFORMATION
  Report Type: Spontaneous
  Country: US (occurrence: None)
  Receive Date: 20121212
  Receipt Date: 20121212
  Transmission Date: 20140127
  Serious: No
  Sender: FDA-Public Use
  Company Number: 1209USA007596

PATIENT
  Age: 57 Year
  Sex: Male

DRUGS (1)
  1. VICTRELIS (BOCEPREVIR) CAPSULES [Suspect]
     Indication: CHRONIC HEPATITIS
     Dosage: 400MG, TID
     Dates: start: 20120805

REACTIONS (2)
  - Vision blurred [None]
  - Incorrect dose administered [None]
